FAERS Safety Report 18384332 (Version 2)
Quarter: 2020Q4

REPORT INFORMATION
  Report Type: Spontaneous
  Country: HU (occurrence: HU)
  Receive Date: 20201015
  Receipt Date: 20201027
  Transmission Date: 20210114
  Serious: Yes (Death, Hospitalization, Other)
  Sender: FDA-Public Use
  Company Number: NVSC2020HU274649

PATIENT
  Age: 51 Year
  Sex: Male

DRUGS (1)
  1. ACETAMINOPHEN (PARACETAMOL) [Suspect]
     Active Substance: ACETAMINOPHEN
     Indication: PRODUCT USED FOR UNKNOWN INDICATION
     Dosage: UNK
     Route: 065

REACTIONS (13)
  - Pneumonia [Unknown]
  - Hepatic failure [Unknown]
  - Hepatic function abnormal [Fatal]
  - Anuria [Fatal]
  - Ammonia increased [Fatal]
  - Respiratory arrest [Fatal]
  - Metabolic acidosis [Fatal]
  - International normalised ratio abnormal [Fatal]
  - Alcoholism [Unknown]
  - Circulatory collapse [Fatal]
  - Toxicity to various agents [Fatal]
  - Pancreatitis [Unknown]
  - Respiratory arrest [Recovered/Resolved]

NARRATIVE: CASE EVENT DATE: 20191212
